FAERS Safety Report 8891351 (Version 1)
Quarter: 2012Q4

REPORT INFORMATION
  Report Type: Spontaneous
  Country: US (occurrence: None)
  Receive Date: 20121105
  Receipt Date: 20121105
  Transmission Date: 20130627
  Serious: Yes (Hospitalization)
  Sender: FDA-Public Use
  Company Number: None

PATIENT
  Age: 86 Year
  Sex: Female
  Weight: 63.5 kg

DRUGS (2)
  1. FUROSEMIDE [Suspect]
     Route: 048
     Dates: start: 20120706, end: 20120927
  2. SPIRONOLACTONE [Suspect]
     Indication: CONGESTIVE HEART FAILURE
     Route: 048
     Dates: start: 20120515, end: 20120927

REACTIONS (2)
  - Blood potassium increased [None]
  - Blood urea increased [None]
